FAERS Safety Report 9201651 (Version 10)
Quarter: 2015Q2

REPORT INFORMATION
  Report Type: Report from Study
  Country: JP (occurrence: JP)
  Receive Date: 20130401
  Receipt Date: 20150519
  Transmission Date: 20150821
  Serious: Yes (Hospitalization, Other)
  Sender: FDA-Public Use
  Company Number: PHHY2013JP031003

PATIENT
  Age: 54 Year
  Sex: Female
  Weight: 54 kg

DRUGS (31)
  1. FORSENID [Concomitant]
     Indication: PRODUCT USED FOR UNKNOWN INDICATION
     Dosage: 24 MG, UNK
     Route: 048
  2. FERROUS FUMARATE [Concomitant]
     Active Substance: FERROUS FUMARATE
     Dosage: 1 DF, UNK
     Route: 048
     Dates: end: 20130405
  3. OXINORM//OXYCODONE HYDROCHLORIDE [Concomitant]
     Dosage: 10 MG, UNK
     Route: 048
     Dates: start: 20140314
  4. MYSLEE [Concomitant]
     Active Substance: ZOLPIDEM TARTRATE
     Indication: PRODUCT USED FOR UNKNOWN INDICATION
     Dosage: 5 MG, UNK
     Route: 048
     Dates: start: 20130301, end: 20130308
  5. OXYCONTIN [Concomitant]
     Active Substance: OXYCODONE HYDROCHLORIDE
     Indication: PRODUCT USED FOR UNKNOWN INDICATION
     Dosage: 15 MG, UNK
     Route: 048
     Dates: end: 20130207
  6. OXYCONTIN [Concomitant]
     Active Substance: OXYCODONE HYDROCHLORIDE
     Dosage: 45 MG, UNK
     Route: 048
     Dates: start: 20130628, end: 20130711
  7. SANDOSTATIN LAR DEPOT [Concomitant]
     Active Substance: OCTREOTIDE ACETATE
     Indication: PANCREATIC NEUROENDOCRINE TUMOUR
     Dosage: 30 MG, UNK
     Route: 030
     Dates: start: 20130802
  8. GASMOTIN [Concomitant]
     Active Substance: MOSAPRIDE CITRATE
     Indication: PRODUCT USED FOR UNKNOWN INDICATION
     Dosage: 15 MG, UNK
     Route: 048
  9. FERROUS FUMARATE [Concomitant]
     Active Substance: FERROUS FUMARATE
     Indication: PRODUCT USED FOR UNKNOWN INDICATION
     Dosage: 1 DF, UNK
     Route: 048
  10. NAUZELIN [Concomitant]
     Active Substance: DOMPERIDONE
     Indication: PROPHYLAXIS
     Dosage: 60 MG, UNK
     Route: 048
     Dates: start: 20130322, end: 20130802
  11. PRIMPERAN [Concomitant]
     Active Substance: METOCLOPRAMIDE HYDROCHLORIDE
     Indication: PROPHYLAXIS
     Dosage: 5 MG, UNK
     Route: 048
     Dates: start: 20130802, end: 20131101
  12. SANDOSTATIN [Concomitant]
     Active Substance: OCTREOTIDE ACETATE
     Indication: PANCREATIC NEUROENDOCRINE TUMOUR
     Dosage: UNK
     Route: 058
  13. OXYCONTIN [Concomitant]
     Active Substance: OXYCODONE HYDROCHLORIDE
     Dosage: 20 MG, UNK
     Route: 048
     Dates: start: 20130208, end: 20130321
  14. MUCOSTA [Concomitant]
     Active Substance: REBAMIPIDE
     Indication: PRODUCT USED FOR UNKNOWN INDICATION
     Dosage: 300 MG, UNK
     Route: 048
     Dates: end: 20131101
  15. MAGMITT [Concomitant]
     Active Substance: MAGNESIUM OXIDE
     Indication: PRODUCT USED FOR UNKNOWN INDICATION
     Dosage: 990 MG, UNK
     Route: 048
  16. SODIUM GUALENATE HYDRATE [Concomitant]
     Active Substance: SODIUM GUALENATE MONOHYDRATE
     Indication: PROPHYLAXIS
     Dosage: 5 ML, UNK
     Route: 049
  17. NOVAMIN//PROCHLORPERAZINE MALEATE [Concomitant]
     Indication: PROPHYLAXIS
     Dosage: 5 MG, UNK
     Route: 048
     Dates: start: 20130302, end: 20130607
  18. NAIXAN [Concomitant]
     Active Substance: NAPROXEN SODIUM
     Indication: PRODUCT USED FOR UNKNOWN INDICATION
     Dosage: 600 MG, UNK
     Route: 048
  19. NORVASC [Concomitant]
     Active Substance: AMLODIPINE BESYLATE
     Indication: PRODUCT USED FOR UNKNOWN INDICATION
     Dosage: 5 MG, UNK
     Route: 048
     Dates: start: 20140214
  20. AFINITOR [Suspect]
     Active Substance: EVEROLIMUS
     Dosage: 5 MG, QD
     Route: 048
     Dates: start: 20130322, end: 20130517
  21. OXYCONTIN [Concomitant]
     Active Substance: OXYCODONE HYDROCHLORIDE
     Dosage: 30 MG, UNK
     Route: 048
     Dates: start: 20130712, end: 20131101
  22. TAKEPRON [Concomitant]
     Active Substance: LANSOPRAZOLE
     Indication: PRODUCT USED FOR UNKNOWN INDICATION
     Dosage: 15 MG, UNK
     Route: 048
  23. MYSLEE [Concomitant]
     Active Substance: ZOLPIDEM TARTRATE
     Dosage: 5 MG, UNK
     Route: 048
     Dates: start: 20131113
  24. AFINITOR [Suspect]
     Active Substance: EVEROLIMUS
     Dosage: 10 MG, QD
     Route: 048
     Dates: start: 20130518, end: 20131101
  25. FERROUS FUMARATE [Concomitant]
     Active Substance: FERROUS FUMARATE
     Dosage: 1 DF, UNK
     Route: 048
     Dates: start: 20140314, end: 20140508
  26. AFINITOR [Suspect]
     Active Substance: EVEROLIMUS
     Indication: PANCREATIC NEUROENDOCRINE TUMOUR
     Dosage: 10 MG, QD
     Route: 048
     Dates: start: 20120515, end: 20130228
  27. AFINITOR [Suspect]
     Active Substance: EVEROLIMUS
     Dosage: 10 MG, QD
     Route: 048
     Dates: start: 20131106
  28. OXINORM//OXYCODONE HYDROCHLORIDE [Concomitant]
     Indication: PRODUCT USED FOR UNKNOWN INDICATION
     Dosage: 5 MG, UNK
     Route: 048
     Dates: start: 20120131
  29. LUNESTA [Concomitant]
     Active Substance: ESZOPICLONE
     Indication: INSOMNIA
     Dosage: 2 MG, UNK
     Route: 048
     Dates: start: 20130322, end: 20130712
  30. AVAPRO [Suspect]
     Active Substance: IRBESARTAN
     Indication: PRODUCT USED FOR UNKNOWN INDICATION
     Dosage: 100 MG, UNK
     Route: 048
  31. OXYCONTIN [Concomitant]
     Active Substance: OXYCODONE HYDROCHLORIDE
     Dosage: 30 MG, UNK
     Route: 048
     Dates: start: 20130322, end: 20130627

REACTIONS (28)
  - Alanine aminotransferase increased [Recovered/Resolved]
  - Blood cholesterol increased [Not Recovered/Not Resolved]
  - Pharyngitis [Recovered/Resolved]
  - Malignant neoplasm progression [Not Recovered/Not Resolved]
  - Cancer pain [Not Recovered/Not Resolved]
  - Intestinal obstruction [Recovered/Resolved]
  - Hyperphosphatasaemia [Not Recovered/Not Resolved]
  - Palpitations [Recovered/Resolved]
  - Blood lactate dehydrogenase increased [Not Recovered/Not Resolved]
  - Stomatitis [Recovered/Resolved]
  - Hot flush [Recovered/Resolved]
  - Pneumonitis [Unknown]
  - Interstitial lung disease [Recovering/Resolving]
  - Insomnia [Recovered/Resolved]
  - Blood alkaline phosphatase increased [Unknown]
  - Subcutaneous abscess [Recovered/Resolved]
  - Back pain [Recovered/Resolved]
  - Hypertriglyceridaemia [Not Recovered/Not Resolved]
  - Blood triglycerides increased [Unknown]
  - Iron deficiency anaemia [Recovered/Resolved]
  - Hypertension [Recovered/Resolved]
  - Nausea [Recovered/Resolved]
  - Gingivitis [Recovered/Resolved]
  - Blood glucose increased [Unknown]
  - Iron deficiency anaemia [Recovered/Resolved]
  - Gamma-glutamyltransferase increased [Not Recovered/Not Resolved]
  - Aspartate aminotransferase increased [Recovered/Resolved]
  - Hyperproteinaemia [Recovered/Resolved]

NARRATIVE: CASE EVENT DATE: 20120517
